FAERS Safety Report 12963971 (Version 2)
Quarter: 2016Q4

REPORT INFORMATION
  Report Type: Report from Study
  Country: DE (occurrence: DE)
  Receive Date: 20161122
  Receipt Date: 20161205
  Transmission Date: 20170207
  Serious: Yes (Hospitalization)
  Sender: FDA-Public Use
  Company Number: PHHO2016DE016938

PATIENT
  Age: 66 Year
  Sex: Male

DRUGS (1)
  1. AIN457 [Suspect]
     Active Substance: SECUKINUMAB
     Indication: PSORIASIS
     Dosage: 300 MG, UNK
     Route: 058
     Dates: end: 20161018

REACTIONS (1)
  - Arteriosclerosis [Recovering/Resolving]

NARRATIVE: CASE EVENT DATE: 20161110
